FAERS Safety Report 7106079-0 (Version None)
Quarter: 2010Q4

REPORT INFORMATION
  Report Type: 
  Country: None (occurrence: None)
  Receive Date: 20101116
  Receipt Date: 20101102
  Transmission Date: 20110411
  Serious: Yes (Hospitalization)
  Sender: FDA-Public Use
  Company Number: JP-MERCK-1011USA00754

PATIENT
  Age: 75 Year
  Sex: Female

DRUGS (1)
  1. SINEMET [Suspect]
     Route: 048
     Dates: start: 20100101

REACTIONS (1)
  - DIABETES MELLITUS INADEQUATE CONTROL [None]
